FAERS Safety Report 11414137 (Version 2)
Quarter: 2024Q2

REPORT INFORMATION
  Report Type: Spontaneous
  Country: US (occurrence: US)
  Receive Date: 20150824
  Receipt Date: 20240612
  Transmission Date: 20240715
  Serious: Yes (Other)
  Sender: FDA-Public Use
  Company Number: US-PFIZER INC-2015281800

PATIENT
  Age: 62 Year
  Sex: Female

DRUGS (1)
  1. CELECOXIB [Suspect]
     Active Substance: CELECOXIB
     Indication: Arthritis
     Dosage: UNK, ON AN INTERMITTENT BASIS
     Route: 065

REACTIONS (14)
  - Drug hypersensitivity [Unknown]
  - Kounis syndrome [Unknown]
  - Electrocardiogram ST segment elevation [Recovered/Resolved]
  - Respiratory distress [Unknown]
  - Myocardial ischaemia [Unknown]
  - Dyspnoea [Recovering/Resolving]
  - Chest pain [Recovering/Resolving]
  - Vomiting [Unknown]
  - Flushing [Unknown]
  - Pruritus [Unknown]
  - Tachycardia [Unknown]
  - Blood pressure decreased [Unknown]
  - Hyperhidrosis [Unknown]
  - Ventricular extrasystoles [Unknown]
